FAERS Safety Report 4846989-8 (Version None)
Quarter: 2005Q4

REPORT INFORMATION
  Report Type: 
  Country: None (occurrence: None)
  Receive Date: 20051205
  Receipt Date: 20051122
  Transmission Date: 20060501
  Serious: Yes (Other)
  Sender: FDA-Public Use
  Company Number: 2005159240

PATIENT
  Age: 73 Year
  Sex: Female
  Weight: 74.8435 kg

DRUGS (3)
  1. DETROL LA [Suspect]
     Indication: INCONTINENCE
     Dosage: 4 MG (4 MG, 1 IN 1 D), ORAL
     Route: 048
  2. DETROL LA [Suspect]
     Indication: POLLAKIURIA
     Dosage: 4 MG (4 MG, 1 IN 1 D), ORAL
     Route: 048
  3. SYNTHROID [Concomitant]

REACTIONS (7)
  - ARTHRITIS [None]
  - DRUG EFFECT DECREASED [None]
  - GLAUCOMA [None]
  - HYPERTENSION [None]
  - MACULAR DEGENERATION [None]
  - PALPITATIONS [None]
  - WEIGHT INCREASED [None]
